FAERS Safety Report 17071715 (Version 2)
Quarter: 2019Q4

REPORT INFORMATION
  Report Type: Spontaneous
  Country: US (occurrence: US)
  Receive Date: 20191125
  Receipt Date: 20191230
  Transmission Date: 20200122
  Serious: Yes (Other)
  Sender: FDA-Public Use
  Company Number: US-PFIZER INC-2019509072

PATIENT
  Age: 84 Year
  Sex: Female

DRUGS (2)
  1. LYRICA [Suspect]
     Active Substance: PREGABALIN
     Dosage: 300 MG, 2X/DAY
  2. LYRICA [Suspect]
     Active Substance: PREGABALIN
     Dosage: 100 MG, 2X/DAY (MORNING AND NIGHT)

REACTIONS (6)
  - Fall [Recovered/Resolved]
  - Intentional product misuse [Unknown]
  - Accident [Unknown]
  - Balance disorder [Unknown]
  - Alcohol poisoning [Unknown]
  - Macular degeneration [Unknown]
